FAERS Safety Report 6167649-X (Version None)
Quarter: 2009Q2

REPORT INFORMATION
  Report Type: 
  Country: None (occurrence: None)
  Receive Date: 20090424
  Receipt Date: 20090416
  Transmission Date: 20091009
  Serious: Yes (Hospitalization)
  Sender: FDA-Public Use
  Company Number: PHEH2009US03823

PATIENT
  Sex: Female

DRUGS (2)
  1. EXELON [Suspect]
     Dosage: 9.5 MG, QD
     Route: 062
  2. EXELON [Suspect]
     Dosage: 2 PATCHES OF 9.5 MG
     Route: 062

REACTIONS (2)
  - BRADYCARDIA [None]
  - DRUG ADMINISTRATION ERROR [None]
